FAERS Safety Report 11343624 (Version 1)
Quarter: 2015Q3

REPORT INFORMATION
  Report Type: Spontaneous
  Country: IT (occurrence: None)
  Receive Date: 20150804
  Receipt Date: 20150804
  Transmission Date: 20151125
  Serious: Yes (Hospitalization, Other)
  Sender: FDA-Public Use
  Company Number: UK138700

PATIENT
  Age: 18 Year
  Sex: Female

DRUGS (1)
  1. KINERET [Suspect]
     Active Substance: ANAKINRA
     Indication: JUVENILE IDIOPATHIC ARTHRITIS
     Dosage: 1 D
     Route: 058
     Dates: start: 20030224, end: 20030312

REACTIONS (11)
  - Serum ferritin increased [None]
  - Hepatic enzyme increased [None]
  - White blood cell count decreased [None]
  - Histiocytosis haematophagic [None]
  - Weber-Christian disease [None]
  - Fibrin degradation products [None]
  - Pyrexia [None]
  - Hypertriglyceridaemia [None]
  - Platelet count decreased [None]
  - Skin lesion [None]
  - Red blood cell sedimentation rate abnormal [None]

NARRATIVE: CASE EVENT DATE: 20030312
